FAERS Safety Report 9265918 (Version 1)
Quarter: 2013Q2

REPORT INFORMATION
  Report Type: Spontaneous
  Country: US (occurrence: US)
  Receive Date: 20130501
  Receipt Date: 20130501
  Transmission Date: 20140414
  Serious: Yes (Other)
  Sender: FDA-Public Use
  Company Number: CHPA2013US007350

PATIENT
  Age: 59 Year
  Sex: Female

DRUGS (2)
  1. TRIAMINIC LONG ACTING COUGH [Suspect]
     Indication: ASTHMA
     Dosage: UNK, UNK
     Route: 048
     Dates: start: 1974
  2. TRIAMINIC LONG ACTING COUGH [Suspect]
     Indication: COUGH

REACTIONS (5)
  - Asthma [Unknown]
  - Disease recurrence [Unknown]
  - Wheezing [Unknown]
  - Therapeutic response unexpected [Unknown]
  - Off label use [Unknown]
